FAERS Safety Report 4475740-9 (Version None)
Quarter: 2004Q4

REPORT INFORMATION
  Report Type: 
  Country: None (occurrence: None)
  Receive Date: 20041015
  Receipt Date: 20041008
  Transmission Date: 20050328
  Serious: Yes (Death, Hospitalization)
  Sender: FDA-Public Use
  Company Number: US-AMGEN-US094189

PATIENT
  Sex: Female
  Weight: 64.3 kg

DRUGS (11)
  1. NEULASTA [Suspect]
     Indication: MYELODYSPLASTIC SYNDROME
     Route: 058
     Dates: start: 20040925, end: 20040925
  2. VIDAZA [Suspect]
     Dates: start: 20040918, end: 20040924
  3. LIPITOR [Concomitant]
  4. CALCIUM [Concomitant]
  5. VITAMIN D [Concomitant]
  6. VITAMIN C [Concomitant]
  7. FOLIC ACID [Concomitant]
  8. METAMUCIL-2 [Concomitant]
  9. IMODIUM [Concomitant]
  10. TYLENOL [Concomitant]
  11. PROCRIT [Concomitant]
     Dates: start: 20010320

REACTIONS (1)
  - ACUTE RESPIRATORY DISTRESS SYNDROME [None]
